FAERS Safety Report 9233625 (Version 1)
Quarter: 2013Q1

REPORT INFORMATION
  Report Type: Spontaneous
  Country: US (occurrence: None)
  Receive Date: 20121031
  Receipt Date: 20121031
  Transmission Date: 20140127
  Serious: No
  Sender: FDA-Public Use
  Company Number: PHEH2012US014520

PATIENT
  Age: 70 Year
  Sex: Female
  Weight: 63.5 kg

DRUGS (5)
  1. GILENYA (FTY) CAPSULE, 0.5MG [Suspect]
     Indication: MULTIPLE SCLEROSIS
     Route: 048
     Dates: start: 20110915
  2. ZOCOR (SIMVASTATIN) [Concomitant]
  3. PRILOSEC [Concomitant]
  4. RAZADYNE (GALANTAMINE HYDROBROMIDE) [Concomitant]
  5. LEVOXYL (LEVOTHYROXINE SODIUM) [Concomitant]

REACTIONS (4)
  - Pigmentation disorder [None]
  - Blood pressure fluctuation [None]
  - Multiple sclerosis relapse [None]
  - Alopecia [None]
